FAERS Safety Report 6899816-1 (Version None)
Quarter: 2010Q3

REPORT INFORMATION
  Report Type: 
  Country: None (occurrence: None)
  Receive Date: 20100803
  Receipt Date: 20100729
  Transmission Date: 20110219
  Serious: Yes (Death, Life-Threatening, Other)
  Sender: FDA-Public Use
  Company Number: PL-ROXANE LABORATORIES, INC.-2010-RO-00941RO

PATIENT
  Age: 0 Day
  Sex: Male
  Weight: 2 kg

DRUGS (4)
  1. DIGOXIN [Suspect]
     Indication: CARDIOMEGALY
     Route: 064
  2. DIGOXIN [Suspect]
     Indication: FOETAL CARDIAC DISORDER
  3. CELESTONE [Suspect]
     Indication: MATERNAL THERAPY TO ENHANCE FOETAL LUNG MATURITY
     Route: 064
  4. PROSTIN E2 [Suspect]
     Indication: EBSTEIN'S ANOMALY

REACTIONS (7)
  - APGAR SCORE LOW [None]
  - CARDIOVASCULAR INSUFFICIENCY [None]
  - CONGENITAL INFECTION [None]
  - DEATH [None]
  - HAEMORRHAGIC DIATHESIS [None]
  - RESPIRATORY FAILURE [None]
  - THROMBOCYTOPENIA [None]
